FAERS Safety Report 22107554 (Version 1)
Quarter: 2023Q1

REPORT INFORMATION
  Report Type: Spontaneous
  Country: IT (occurrence: IT)
  Receive Date: 20230317
  Receipt Date: 20230317
  Transmission Date: 20230417
  Serious: Yes (Hospitalization, Other)
  Sender: FDA-Public Use
  Company Number: None

PATIENT
  Age: 48 Year
  Sex: Female
  Weight: 57 kg

DRUGS (1)
  1. HYRIMOZ [Suspect]
     Active Substance: ADALIMUMAB-ADAZ
     Indication: Ankylosing spondylitis
     Dosage: 40 MG, Q2W (FARMACO NON RIPRESO)
     Route: 058
     Dates: start: 202209, end: 202302

REACTIONS (7)
  - Dysarthria [Recovering/Resolving]
  - Balance disorder [Recovering/Resolving]
  - Eyelid ptosis [Recovering/Resolving]
  - Ataxia [Recovering/Resolving]
  - Diplopia [Recovering/Resolving]
  - Hyporeflexia [Recovering/Resolving]
  - Pyrexia [Recovered/Resolved]

NARRATIVE: CASE EVENT DATE: 20230205
